FAERS Safety Report 4719400-5 (Version None)
Quarter: 2005Q3

REPORT INFORMATION
  Report Type: 
  Country: None (occurrence: None)
  Receive Date: 20050721
  Receipt Date: 20030908
  Transmission Date: 20060218
  Serious: Yes (Hospitalization, Other)
  Sender: FDA-Public Use
  Company Number: US-BRISTOL-MYERS SQUIBB COMPANY-12377222

PATIENT
  Age: 63 Year
  Sex: Female
  Weight: 59 kg

DRUGS (3)
  1. ESTRACE [Suspect]
     Indication: MENOPAUSE
     Dosage: DURATION OF THERAPY: SEVERAL YEARS.
     Dates: start: 19930511, end: 20010101
  2. PROVERA [Suspect]
     Indication: MENOPAUSE
     Dates: start: 19880101, end: 20010101
  3. PREMARIN [Suspect]
     Indication: MENOPAUSE
     Dates: start: 19880101, end: 19960101

REACTIONS (1)
  - BREAST CANCER [None]
